FAERS Safety Report 12989599 (Version 1)
Quarter: 2016Q4

REPORT INFORMATION
  Report Type: Spontaneous
  Country: FR (occurrence: FR)
  Receive Date: 20161201
  Receipt Date: 20161201
  Transmission Date: 20170207
  Serious: Yes (Other)
  Sender: FDA-Public Use
  Company Number: FR-ASTRAZENECA-2016SF26401

PATIENT
  Age: 87 Year
  Sex: Female

DRUGS (2)
  1. ATACAND [Suspect]
     Active Substance: CANDESARTAN CILEXETIL
     Indication: TENSION
     Route: 048
     Dates: start: 2015, end: 20161123
  2. FLECAINE [Concomitant]
     Active Substance: FLECAINIDE

REACTIONS (8)
  - Blood pressure increased [Recovered/Resolved]
  - Vertigo [Recovered/Resolved]
  - Tremor [Recovered/Resolved]
  - Product use issue [Unknown]
  - Off label use [Recovered/Resolved]
  - Heart rate decreased [Recovered/Resolved]
  - Nausea [Unknown]
  - Heart rate increased [Recovered/Resolved]

NARRATIVE: CASE EVENT DATE: 2015
